FAERS Safety Report 20580890 (Version 1)
Quarter: 2022Q1

REPORT INFORMATION
  Report Type: Spontaneous
  Country: RU (occurrence: RU)
  Receive Date: 20220311
  Receipt Date: 20220311
  Transmission Date: 20220423
  Serious: Yes (Other)
  Sender: FDA-Public Use
  Company Number: None

PATIENT
  Age: 54 Year
  Sex: Female
  Weight: 58 kg

DRUGS (5)
  1. FIASP [Suspect]
     Active Substance: INSULIN ASPART
     Indication: Type 1 diabetes mellitus
     Dosage: 8 IU
     Route: 058
     Dates: start: 20210608, end: 20210609
  2. BLOOD, BOVINE [Concomitant]
     Active Substance: BLOOD, BOVINE
     Indication: Polyneuropathy
     Dosage: 400 MG INTRAVENOUSLY BY STREAM
     Route: 042
     Dates: start: 20210602, end: 20210609
  3. LEVEMIR [Concomitant]
     Active Substance: INSULIN DETEMIR
     Indication: Type 1 diabetes mellitus
     Dosage: 30 IU
     Route: 058
     Dates: start: 20210602
  4. LIPOTHIOXON [Concomitant]
     Indication: Polyneuropathy
     Dosage: 600 MG
     Route: 042
     Dates: start: 20210602, end: 20210609
  5. DEXTROSE [Concomitant]
     Active Substance: DEXTROSE
     Indication: Product used for unknown indication
     Dosage: UNK
     Route: 065

REACTIONS (3)
  - Tonic convulsion [Recovered/Resolved]
  - Erythema [Recovered/Resolved]
  - Blood glucose decreased [Recovered/Resolved]

NARRATIVE: CASE EVENT DATE: 20210609
